FAERS Safety Report 8763870 (Version 1)
Quarter: 2012Q4

REPORT INFORMATION
  Report Type: 
  Country: KR (occurrence: KR)
  Receive Date: 20120831
  Receipt Date: 20120831
  Transmission Date: 20130627
  Serious: Yes (Hospitalization)
  Sender: FDA-Public Use
  Company Number: PHHY2012KR075110

PATIENT
  Sex: Female

DRUGS (3)
  1. GLIVEC [Suspect]
     Indication: CHRONIC MYELOID LEUKAEMIA
     Dosage: 400 mg, per day
     Route: 048
     Dates: start: 20101203, end: 201203
  2. GLIVEC [Suspect]
     Dosage: 300 mg, per day
     Route: 048
     Dates: start: 201203
  3. GLIVEC [Suspect]
     Dosage: 3 DF, daily
     Route: 048

REACTIONS (1)
  - Back pain [Unknown]
